FAERS Safety Report 9774325 (Version 1)
Quarter: 2013Q4

REPORT INFORMATION
  Report Type: Spontaneous
  Country: US (occurrence: None)
  Receive Date: 20131219
  Receipt Date: 20131219
  Transmission Date: 20140711
  Serious: Yes (Death)
  Sender: FDA-Public Use
  Company Number: None

PATIENT
  Age: 65 Year
  Sex: Female

DRUGS (1)
  1. XJADE [Suspect]
     Indication: ANAEMIA OF CHRONIC DISEASE
     Route: 048
     Dates: start: 20131014, end: 20131211

REACTIONS (1)
  - Death [None]
